FAERS Safety Report 13463888 (Version 1)
Quarter: 2017Q2

REPORT INFORMATION
  Report Type: Spontaneous
  Country: US (occurrence: US)
  Receive Date: 20170420
  Receipt Date: 20170420
  Transmission Date: 20170830
  Serious: Yes (Other)
  Sender: FDA-Public Use
  Company Number: US-ROCHE-714519

PATIENT
  Age: 17 Year
  Sex: Male

DRUGS (1)
  1. ACCUTANE [Suspect]
     Active Substance: ISOTRETINOIN
     Indication: ACNE CYSTIC
     Route: 048
     Dates: start: 199908, end: 199912

REACTIONS (8)
  - Lip dry [Unknown]
  - Arthralgia [Unknown]
  - Pharyngitis [Unknown]
  - Varicocele [Unknown]
  - Inflammatory bowel disease [Unknown]
  - Decreased appetite [Unknown]
  - Proctitis [Unknown]
  - Tonsillitis [Unknown]

NARRATIVE: CASE EVENT DATE: 19990921
